FAERS Safety Report 10494945 (Version 1)
Quarter: 2014Q3

REPORT INFORMATION
  Report Type: Spontaneous
  Country: US (occurrence: None)
  Receive Date: 20140815
  Receipt Date: 20140815
  Transmission Date: 20150326
  Serious: Yes (Other)
  Sender: FDA-Public Use
  Company Number: ADR-2014-00906

PATIENT
  Age: 18 Year
  Sex: Male

DRUGS (2)
  1. LIORESAL [Suspect]
     Active Substance: BACLOFEN
     Indication: MUSCLE SPASTICITY
     Dates: start: 20010824
  2. LEVETIRACETAM 1500MG [Suspect]
     Active Substance: LEVETIRACETAM
     Route: 048

REACTIONS (1)
  - Muscle spasticity [None]

NARRATIVE: CASE EVENT DATE: 20140414
